FAERS Safety Report 10285620 (Version 1)
Quarter: 2014Q3

REPORT INFORMATION
  Report Type: Spontaneous
  Country: US (occurrence: US)
  Receive Date: 20140709
  Receipt Date: 20140709
  Transmission Date: 20150326
  Serious: No
  Sender: FDA-Public Use
  Company Number: US-BIOGENIDEC-2014BI065694

PATIENT
  Age: 36 Year
  Sex: Female

DRUGS (1)
  1. AVONEX [Suspect]
     Active Substance: INTERFERON BETA-1A
     Indication: MULTIPLE SCLEROSIS
     Route: 030
     Dates: start: 1999, end: 1999

REACTIONS (12)
  - Gastric disorder [Not Recovered/Not Resolved]
  - Colitis [Unknown]
  - Atrophy [Unknown]
  - Soft tissue injury [Not Recovered/Not Resolved]
  - Gastrooesophageal reflux disease [Unknown]
  - Mobility decreased [Unknown]
  - Flatulence [Not Recovered/Not Resolved]
  - Multiple sclerosis relapse [Unknown]
  - Drug ineffective [Recovered/Resolved]
  - Flushing [Unknown]
  - Feeling abnormal [Unknown]
  - Gastrointestinal mucosal disorder [Not Recovered/Not Resolved]

NARRATIVE: CASE EVENT DATE: 1999
